FAERS Safety Report 9733403 (Version 2)
Quarter: 2014Q1

REPORT INFORMATION
  Report Type: Spontaneous
  Country: PT (occurrence: PT)
  Receive Date: 20131205
  Receipt Date: 20140120
  Transmission Date: 20141002
  Serious: Yes (Death, Other)
  Sender: FDA-Public Use
  Company Number: PT-JNJFOC-20131200302

PATIENT
  Sex: Male

DRUGS (2)
  1. HALDOL [Suspect]
     Indication: PSYCHOTIC DISORDER
     Route: 030
  2. RISPERIDONE [Suspect]
     Indication: PRODUCT USED FOR UNKNOWN INDICATION
     Route: 065

REACTIONS (3)
  - Leukaemia [Fatal]
  - Intestinal ulcer [Unknown]
  - Anaemia [Unknown]
